FAERS Safety Report 7553007-X (Version None)
Quarter: 2011Q2

REPORT INFORMATION
  Report Type: 
  Country: None (occurrence: None)
  Receive Date: 20110616
  Receipt Date: 20110616
  Transmission Date: 20111010
  Serious: Yes (Other)
  Sender: FDA-Public Use
  Company Number: ES-ABBOTT-11P-144-0730601-00

PATIENT
  Age: 31 Year
  Sex: Male

DRUGS (3)
  1. ADALIMUMAB [Suspect]
     Indication: RHEUMATOID ARTHRITIS
     Route: 050
  2. METOTREXATE [Concomitant]
     Indication: RHEUMATOID ARTHRITIS
     Dosage: 25 MG/WEEKLY
  3. DEFLAZACORT 12.5 MG/DAY [Concomitant]
     Indication: RHEUMATOID ARTHRITIS

REACTIONS (11)
  - GUILLAIN-BARRE SYNDROME [None]
  - GASTROENTERITIS [None]
  - PYREXIA [None]
  - GAIT DISTURBANCE [None]
  - MENINGEAL DISORDER [None]
  - DIARRHOEA [None]
  - AREFLEXIA [None]
  - VOMITING [None]
  - NECK PAIN [None]
  - NUCHAL RIGIDITY [None]
  - SCIATICA [None]
